FAERS Safety Report 18625398 (Version 3)
Quarter: 2021Q3

REPORT INFORMATION
  Report Type: Spontaneous
  Country: US (occurrence: US)
  Receive Date: 20201216
  Receipt Date: 20210811
  Transmission Date: 20211014
  Serious: Yes (Death, Hospitalization, Other)
  Sender: FDA-Public Use
  Company Number: US-CATALYST PHARMACEUTICALS, INC-2020CAT00547

PATIENT
  Age: 72 Year
  Sex: Female
  Weight: 51.7 kg

DRUGS (6)
  1. FIRDAPSE [Suspect]
     Active Substance: AMIFAMPRIDINE PHOSPHATE
     Indication: MYASTHENIC SYNDROME
     Dosage: 5 MG, 3X/DAY
     Dates: start: 202010, end: 202010
  2. FIRDAPSE [Suspect]
     Active Substance: AMIFAMPRIDINE PHOSPHATE
     Dosage: 20 MG, 3X/DAY
     Route: 048
     Dates: end: 202107
  3. FIRDAPSE [Suspect]
     Active Substance: AMIFAMPRIDINE PHOSPHATE
     Dosage: 5 MG, 3X/DAY
     Dates: start: 202010, end: 2020
  4. FIRDAPSE [Suspect]
     Active Substance: AMIFAMPRIDINE PHOSPHATE
     Dosage: 10 MG, 5X/DAY
     Route: 048
     Dates: start: 2020
  5. FIRDAPSE [Suspect]
     Active Substance: AMIFAMPRIDINE PHOSPHATE
     Dosage: 10 MG, 1X/DAY IN THE MORNING
     Dates: start: 202010, end: 202010
  6. FIRDAPSE [Suspect]
     Active Substance: AMIFAMPRIDINE PHOSPHATE
     Dosage: 5 MG, 2X/DAY IN THE AFTERNOON AND EVENING
     Dates: start: 202010, end: 202010

REACTIONS (14)
  - Swollen tongue [Recovered/Resolved]
  - Pain [Unknown]
  - Metastases to lymph nodes [Not Recovered/Not Resolved]
  - Blood electrolytes decreased [Not Recovered/Not Resolved]
  - Dyspnoea [Recovered/Resolved]
  - Rhinorrhoea [Not Recovered/Not Resolved]
  - Haemoptysis [Unknown]
  - Vomiting [Unknown]
  - Sluggishness [Unknown]
  - Chest X-ray abnormal [Unknown]
  - Abnormal behaviour [Unknown]
  - Pneumonia [Fatal]
  - Laboratory test abnormal [Unknown]
  - Food refusal [Unknown]

NARRATIVE: CASE EVENT DATE: 202010
